FAERS Safety Report 4769129-2 (Version None)
Quarter: 2005Q3

REPORT INFORMATION
  Report Type: 
  Country: None (occurrence: None)
  Receive Date: 20050913
  Receipt Date: 20050901
  Transmission Date: 20060218
  Serious: Yes (Other)
  Sender: FDA-Public Use
  Company Number: 2005119908

PATIENT
  Age: 32 Year
  Sex: Male
  Weight: 58 kg

DRUGS (4)
  1. AZITHROMYCIN [Suspect]
     Indication: ACUTE TONSILLITIS
     Dosage: 500 MG (QD), ORAL
     Route: 048
     Dates: start: 20050822, end: 20050823
  2. LOXONIN (LOXOPROFEN SODIUM) [Concomitant]
  3. DASEN (SERRAPEPTASE) [Concomitant]
  4. DEQUALINIUM CHLORIDE (DEQUALINIUM CHLORIDE) [Concomitant]

REACTIONS (4)
  - BLOOD LACTATE DEHYDROGENASE INCREASED [None]
  - LISTLESS [None]
  - PYREXIA [None]
  - RHABDOMYOLYSIS [None]
